FAERS Safety Report 26057034 (Version 1)
Quarter: 2025Q4

REPORT INFORMATION
  Report Type: Spontaneous
  Country: US (occurrence: US)
  Receive Date: 20251118
  Receipt Date: 20251118
  Transmission Date: 20260117
  Serious: No
  Sender: RANBAXY
  Company Number: US-SUN PHARMACEUTICAL INDUSTRIES LTD-2025R1-535605

PATIENT
  Sex: Female
  Weight: 70.295 kg

DRUGS (1)
  1. LEQSELVI [Suspect]
     Active Substance: DEURUXOLITINIB PHOSPHATE
     Indication: Alopecia universalis
     Dosage: UNK, BID
     Route: 048

REACTIONS (2)
  - Hypersensitivity [Unknown]
  - Pruritus [Unknown]
